FAERS Safety Report 10099769 (Version 2)
Quarter: 2014Q2

REPORT INFORMATION
  Report Type: Spontaneous
  Country: US (occurrence: US)
  Receive Date: 20140423
  Receipt Date: 20140423
  Transmission Date: 20141212
  Serious: Yes (Other)
  Sender: FDA-Public Use
  Company Number: US-GILEAD-2013-0072320

PATIENT
  Sex: Female

DRUGS (2)
  1. LETAIRIS [Suspect]
     Indication: PULMONARY ARTERIAL HYPERTENSION
     Dosage: 5 MG, UNK
  2. LETAIRIS [Suspect]
     Indication: SCLERODERMA

REACTIONS (2)
  - Oedema peripheral [Not Recovered/Not Resolved]
  - Nasal congestion [Not Recovered/Not Resolved]
